FAERS Safety Report 4330494-1 (Version None)
Quarter: 2004Q2

REPORT INFORMATION
  Report Type: 
  Country: None (occurrence: None)
  Receive Date: 20040401
  Receipt Date: 20040401
  Transmission Date: 20050107
  Serious: Yes (Other)
  Sender: FDA-Public Use
  Company Number: None

PATIENT
  Age: 48 Year
  Sex: Female
  Weight: 87.0906 kg

DRUGS (1)
  1. PAXIL [Suspect]
     Indication: DEPRESSION
     Dosage: 0 MG ONCE A DAY ORAL
     Route: 048
     Dates: start: 19991110, end: 20040327

REACTIONS (3)
  - DRUG WITHDRAWAL SYNDROME [None]
  - SENSORY DISTURBANCE [None]
  - WEIGHT INCREASED [None]
